FAERS Safety Report 25623086 (Version 1)
Quarter: 2025Q3

REPORT INFORMATION
  Report Type: Spontaneous
  Country: EU (occurrence: EU)
  Receive Date: 20250730
  Receipt Date: 20250730
  Transmission Date: 20251021
  Serious: Yes (Other)
  Sender: JOHNSON AND JOHNSON
  Company Number: EU-JNJFOC-20250736663

PATIENT
  Age: 6 Decade
  Sex: Male

DRUGS (14)
  1. HALOPERIDOL [Interacting]
     Active Substance: HALOPERIDOL
     Indication: Insomnia
     Dosage: 2 MILLIGRAM, PM (AT EVENING)
     Route: 065
  2. HALOPERIDOL [Interacting]
     Active Substance: HALOPERIDOL
     Indication: Hallucination, visual
  3. HALOPERIDOL [Interacting]
     Active Substance: HALOPERIDOL
     Indication: Somnambulism
  4. HALOPERIDOL [Interacting]
     Active Substance: HALOPERIDOL
     Indication: Delirium
  5. VORICONAZOLE [Suspect]
     Active Substance: VORICONAZOLE
     Indication: Antifungal prophylaxis
     Route: 065
  6. ISAVUCONAZOLE [Suspect]
     Active Substance: ISAVUCONAZOLE
     Indication: Antifungal prophylaxis
  7. ISAVUCONAZOLE [Suspect]
     Active Substance: ISAVUCONAZOLE
  8. TIAPRIDE [Suspect]
     Active Substance: TIAPRIDE
     Indication: Hallucination, visual
     Dosage: EVERY 1 DAY(S) UNK, QD (UP TO 225 MG/DAY)
     Route: 065
  9. TIAPRIDE [Suspect]
     Active Substance: TIAPRIDE
     Indication: Hallucination, auditory
  10. TIAPRIDE [Suspect]
     Active Substance: TIAPRIDE
     Indication: Hallucination
  11. TIAPRIDE [Suspect]
     Active Substance: TIAPRIDE
     Indication: Persecutory delusion
  12. TIAPRIDE [Suspect]
     Active Substance: TIAPRIDE
     Indication: Behaviour disorder
  13. POSACONAZOLE [Interacting]
     Active Substance: POSACONAZOLE
     Indication: Antifungal prophylaxis
     Dosage: 200 MILLIGRAM, Q6H, THROUGH A NASOGASTRIC TUBE
     Route: 065
  14. AMPHOTERICIN B [Concomitant]
     Active Substance: AMPHOTERICIN B
     Indication: Mucormycosis

REACTIONS (13)
  - Hallucination, visual [Recovered/Resolved]
  - Hallucination [Recovered/Resolved]
  - Hallucination, auditory [Recovered/Resolved]
  - Delirium [Recovered/Resolved]
  - Persecutory delusion [Recovered/Resolved]
  - Respiratory acidosis [Unknown]
  - Disorientation [Recovered/Resolved]
  - Somnambulism [Recovered/Resolved]
  - Behaviour disorder [Recovered/Resolved]
  - Insomnia [Recovered/Resolved]
  - Somnolence [Recovered/Resolved]
  - Drug interaction [Unknown]
  - Drug ineffective [Unknown]
